FAERS Safety Report 5121443-7 (Version None)
Quarter: 2006Q4

REPORT INFORMATION
  Report Type: 
  Country: None (occurrence: None)
  Receive Date: 20061002
  Receipt Date: 20060920
  Transmission Date: 20070319
  Serious: Yes (Other)
  Sender: FDA-Public Use
  Company Number: 2006114136

PATIENT
  Sex: Female
  Weight: 58.9676 kg

DRUGS (4)
  1. ZOLOFT [Suspect]
     Indication: DEPRESSION
     Dosage: 100 MG (100 MG, 1 IN 1 D)
     Dates: start: 20050101, end: 20060101
  2. SEROQUEL [Suspect]
     Dosage: 300 MG (300 MG, 1 IN 1 D)
     Dates: start: 20050101
  3. LEXAPRO [Suspect]
     Dates: end: 20050501
  4. ATENOLOL [Concomitant]

REACTIONS (12)
  - ABNORMAL BEHAVIOUR [None]
  - ALCOHOL USE [None]
  - AMNESIA [None]
  - FEELING ABNORMAL [None]
  - HALLUCINATION [None]
  - ILL-DEFINED DISORDER [None]
  - MALAISE [None]
  - NIGHTMARE [None]
  - PSYCHOTIC DISORDER [None]
  - READING DISORDER [None]
  - THINKING ABNORMAL [None]
  - VOMITING [None]
